FAERS Safety Report 8862729 (Version 1)
Quarter: 2012Q4

REPORT INFORMATION
  Report Type: 
  Country: JP (occurrence: JP)
  Receive Date: 20121026
  Receipt Date: 20121026
  Transmission Date: 20130627
  Serious: Yes (Other)
  Sender: FDA-Public Use
  Company Number: PHHY2012JP096313

PATIENT
  Sex: Female

DRUGS (1)
  1. IMUSERA [Suspect]
     Route: 048
     Dates: start: 201205

REACTIONS (1)
  - Angina pectoris [Unknown]
